FAERS Safety Report 24875982 (Version 2)
Quarter: 2025Q1

REPORT INFORMATION
  Report Type: Spontaneous
  Country: JP (occurrence: JP)
  Receive Date: 20250123
  Receipt Date: 20250127
  Transmission Date: 20250408
  Serious: Yes (Hospitalization, Other)
  Sender: ALEXION PHARMACEUTICALS
  Company Number: JP-ASTRAZENECA-250005205_020520_P_1

PATIENT
  Age: 86 Year

DRUGS (2)
  1. NEXIUM [Suspect]
     Active Substance: ESOMEPRAZOLE MAGNESIUM
     Indication: Gastrooesophageal reflux disease
  2. CELECOXIB [Suspect]
     Active Substance: CELECOXIB
     Route: 065

REACTIONS (1)
  - Rhabdomyolysis [Recovered/Resolved]
